FAERS Safety Report 10190782 (Version 1)
Quarter: 2014Q2

REPORT INFORMATION
  Report Type: Spontaneous
  Country: US (occurrence: US)
  Receive Date: 20140523
  Receipt Date: 20140523
  Transmission Date: 20141212
  Serious: Yes (Hospitalization)
  Sender: FDA-Public Use
  Company Number: US-BEH-2014042652

PATIENT
  Sex: Male
  Weight: 114 kg

DRUGS (13)
  1. BERINERT [Suspect]
     Indication: ANGIOEDEMA
     Dosage: 4 ML PER MINUTE
     Route: 042
  2. DIPHENHYDRAMINE [Concomitant]
  3. HEPARIN [Concomitant]
  4. SODIUM CHLORIDE [Concomitant]
  5. STERILE WATER [Concomitant]
  6. CINRYZE [Concomitant]
  7. EPI PEN [Concomitant]
  8. TRAZODONE [Concomitant]
  9. AMBIEN [Concomitant]
  10. PRILOSEC [Concomitant]
  11. ASPIRIN [Concomitant]
  12. IBUPROFEN [Concomitant]
  13. VALTREX [Concomitant]

REACTIONS (1)
  - Surgery [Unknown]
